FAERS Safety Report 8030241-6 (Version None)
Quarter: 2012Q1

REPORT INFORMATION
  Report Type: 
  Country: None (occurrence: None)
  Receive Date: 20120109
  Receipt Date: 20120103
  Transmission Date: 20120608
  Serious: Yes (Death)
  Sender: FDA-Public Use
  Company Number: CA-ELI_LILLY_AND_COMPANY-CA201201001237

PATIENT
  Age: 91 Year
  Sex: Female

DRUGS (3)
  1. FORTEO [Suspect]
     Indication: OSTEOPOROSIS
     Dosage: 20 UG, QD
     Route: 058
     Dates: start: 20110415, end: 20110523
  2. FERROUS FUMARATE [Concomitant]
     Dosage: UNK
     Dates: start: 20110524
  3. FUROSEMIDE [Concomitant]

REACTIONS (1)
  - DEATH [None]
